FAERS Safety Report 22632609 (Version 1)
Quarter: 2023Q2

REPORT INFORMATION
  Report Type: Spontaneous
  Country: GB (occurrence: GB)
  Receive Date: 20230623
  Receipt Date: 20230623
  Transmission Date: 20230721
  Serious: Yes (Other)
  Sender: FDA-Public Use
  Company Number: None

PATIENT
  Age: 61 Year
  Sex: Female
  Weight: 100 kg

DRUGS (7)
  1. RYBELSUS [Suspect]
     Active Substance: SEMAGLUTIDE
     Indication: Product used for unknown indication
     Dosage: 7 MG, QD (FIRST THING IN THE MORNING ON AN...)
     Dates: start: 20221130
  2. AMLODIPINE [Concomitant]
     Active Substance: AMLODIPINE BESYLATE
     Indication: Product used for unknown indication
     Dosage: 1 TAB QD
     Dates: start: 20230505, end: 20230602
  3. ATORVASTATIN [Concomitant]
     Active Substance: ATORVASTATIN
     Indication: Product used for unknown indication
     Dosage: 1 TAB QD
     Dates: start: 20220629
  4. EMPAGLIFLOZIN [Concomitant]
     Active Substance: EMPAGLIFLOZIN
     Indication: Product used for unknown indication
     Dosage: 1 TAB QD EACH MORNING
     Dates: start: 20230607
  5. INDAPAMIDE [Concomitant]
     Active Substance: INDAPAMIDE
     Indication: Product used for unknown indication
     Dosage: 1 TAB QD MORNING
     Dates: start: 20220629, end: 20230413
  6. LEVOTHYROXINE [Concomitant]
     Active Substance: LEVOTHYROXINE
     Indication: Product used for unknown indication
     Dosage: 1 TAB QD (EACH MORNING 30 MINUTES BEFORE ...)
     Dates: start: 20220725
  7. RAMIPRIL [Concomitant]
     Active Substance: RAMIPRIL
     Indication: Product used for unknown indication
     Dosage: 1 TAB QD
     Dates: start: 20230526

REACTIONS (2)
  - Taste disorder [Recovered/Resolved with Sequelae]
  - Flatulence [Recovered/Resolved with Sequelae]

NARRATIVE: CASE EVENT DATE: 20230607
